FAERS Safety Report 13547626 (Version 2)
Quarter: 2018Q1

REPORT INFORMATION
  Report Type: Spontaneous
  Country: IE (occurrence: IE)
  Receive Date: 20170515
  Receipt Date: 20180131
  Transmission Date: 20180508
  Serious: Yes (Hospitalization)
  Sender: FDA-Public Use
  Company Number: IE-MYLANLABS-2017M1028924

PATIENT
  Age: 43 Year
  Sex: Male

DRUGS (2)
  1. CLOZARIL [Suspect]
     Active Substance: CLOZAPINE
     Indication: SCHIZOPHRENIA
     Dosage: UNK
     Route: 048
     Dates: start: 20120713, end: 201705
  2. VALPROATE [Suspect]
     Active Substance: VALPROIC ACID
     Indication: PRODUCT USED FOR UNKNOWN INDICATION
     Dosage: UNK

REACTIONS (10)
  - White blood cell count increased [Unknown]
  - Malaise [Unknown]
  - Infection [Unknown]
  - Dehydration [Unknown]
  - Renal impairment [Unknown]
  - Intestinal obstruction [Unknown]
  - Constipation [Unknown]
  - Vomiting [Unknown]
  - Faecaloma [Unknown]
  - Confusional state [Unknown]

NARRATIVE: CASE EVENT DATE: 201704
